FAERS Safety Report 17857244 (Version 2)
Quarter: 2020Q2

REPORT INFORMATION
  Report Type: Spontaneous
  Country: SE (occurrence: SE)
  Receive Date: 20200603
  Receipt Date: 20200624
  Transmission Date: 20200714
  Serious: Yes (Death, Hospitalization, Other)
  Sender: FDA-Public Use
  Company Number: SE-AMGEN-SWESP2020084143

PATIENT
  Age: 22 Year
  Sex: Female

DRUGS (3)
  1. NEUPOGEN [Suspect]
     Active Substance: FILGRASTIM
     Indication: IMMUNISATION
     Dosage: 10 MICROGRAM/KILOGRAM, QOD (FOR 10 DAYS)
     Route: 065
  2. EPOETIN BETA [Concomitant]
     Active Substance: ERYTHROPOIETIN
     Indication: IMMUNISATION
     Dosage: UNK
  3. EPOETIN ALFA [Concomitant]
     Active Substance: ERYTHROPOIETIN
     Indication: IMMUNISATION
     Dosage: 40000 INTERNATIONAL UNIT, QOD (FOE 16 DAYS)
     Route: 065

REACTIONS (24)
  - Graft infection [Unknown]
  - Device related thrombosis [Unknown]
  - Sepsis [Unknown]
  - Graft complication [Unknown]
  - Pulmonary haemorrhage [Fatal]
  - Pneumonia [Unknown]
  - Haemolysis [Unknown]
  - Chronic respiratory failure [Unknown]
  - Acute kidney injury [Unknown]
  - Multiple organ dysfunction syndrome [Unknown]
  - Renal failure [Unknown]
  - Device dislocation [Unknown]
  - Splenic haemorrhage [Unknown]
  - Cachexia [Unknown]
  - Mediastinitis [Unknown]
  - Transplant dysfunction [Unknown]
  - Hyperaesthesia [Unknown]
  - Post procedural infection [Unknown]
  - Peripheral artery thrombosis [Unknown]
  - Splenic infarction [Unknown]
  - Depression [Unknown]
  - Hallucination [Unknown]
  - Injury [Unknown]
  - Off label use [Unknown]
